FAERS Safety Report 11843379 (Version 1)
Quarter: 2015Q4

REPORT INFORMATION
  Report Type: Report from Study
  Country: IT (occurrence: IT)
  Receive Date: 20151217
  Receipt Date: 20151217
  Transmission Date: 20160305
  Serious: Yes (Hospitalization)
  Sender: FDA-Public Use
  Company Number: IT-ROCHE-1676833

PATIENT
  Age: 52 Year
  Sex: Female

DRUGS (8)
  1. CISPLATIN. [Suspect]
     Active Substance: CISPLATIN
     Indication: DIFFUSE LARGE B-CELL LYMPHOMA
     Dosage: ROUTE OF ADMINISTRATION AS PER PROTOCOL
     Route: 042
     Dates: start: 20151201, end: 20151204
  2. BACTRIM [Concomitant]
     Active Substance: SULFAMETHOXAZOLE\TRIMETHOPRIM
     Route: 065
  3. LENOGRASTIM [Concomitant]
     Active Substance: LENOGRASTIM
     Dosage: 1 FL
     Route: 065
     Dates: start: 20151205, end: 20151209
  4. OBINUTUZUMAB [Suspect]
     Active Substance: OBINUTUZUMAB
     Indication: DIFFUSE LARGE B-CELL LYMPHOMA
     Dosage: ROUTE OF ADMINISTRATION AS PER PROTOCOL
     Route: 042
     Dates: start: 20151201, end: 20151204
  5. LANSOX [Concomitant]
     Active Substance: LANSOPRAZOLE
  6. DEXAMETHASONE. [Suspect]
     Active Substance: DEXAMETHASONE
     Indication: DIFFUSE LARGE B-CELL LYMPHOMA
     Dosage: ROUTE OF ADMINISTRATION AS PER PROTOCOL
     Route: 042
     Dates: start: 20151201, end: 20151204
  7. CYTARABINE. [Suspect]
     Active Substance: CYTARABINE
     Indication: DIFFUSE LARGE B-CELL LYMPHOMA
     Dosage: ROUTE OF ADMINISTRATION AS PER PROTOCOL
     Route: 042
     Dates: start: 20151201, end: 20151204
  8. ZYLORIC [Concomitant]
     Active Substance: ALLOPURINOL

REACTIONS (1)
  - Pancytopenia [Unknown]

NARRATIVE: CASE EVENT DATE: 20151209
